FAERS Safety Report 10713686 (Version 1)
Quarter: 2015Q1

REPORT INFORMATION
  Report Type: Spontaneous
  Country: IT (occurrence: IT)
  Receive Date: 20150115
  Receipt Date: 20150115
  Transmission Date: 20150721
  Serious: Yes (Other)
  Sender: FDA-Public Use
  Company Number: IT-CIPLA LTD.-2015IT00396

PATIENT
  Age: 21 Year
  Sex: Female

DRUGS (4)
  1. AMETHIA LO [Interacting]
     Active Substance: ETHINYL ESTRADIOL\LEVONORGESTREL
     Indication: ACNE
     Dosage: 0.1 MG/ 0.02 MG
  2. AMETHIA LO [Interacting]
     Active Substance: ETHINYL ESTRADIOL\LEVONORGESTREL
     Indication: MENSTRUAL DISORDER
  3. TOPIRAMATE. [Interacting]
     Active Substance: TOPIRAMATE
     Dosage: 50 MG, BID
  4. TOPIRAMATE. [Suspect]
     Active Substance: TOPIRAMATE
     Indication: MIGRAINE WITHOUT AURA
     Dosage: 25 MG, PER DAY

REACTIONS (4)
  - Haemorrhage [Unknown]
  - Drug interaction [Unknown]
  - Ovarian cyst [Unknown]
  - Ovarian disorder [Unknown]
